FAERS Safety Report 15735786 (Version 1)
Quarter: 2018Q4

REPORT INFORMATION
  Report Type: Spontaneous
  Country: US (occurrence: US)
  Receive Date: 20181218
  Receipt Date: 20181218
  Transmission Date: 20190205
  Serious: Yes (Hospitalization)
  Sender: FDA-Public Use
  Company Number: None

PATIENT
  Sex: Male

DRUGS (9)
  1. CELLCEPT [Suspect]
     Active Substance: MYCOPHENOLATE MOFETIL\MYCOPHENOLATE MOFETIL HYDROCHLORIDE
     Indication: RENAL TRANSPLANT
     Route: 048
     Dates: start: 20131101
  2. PANTOPRAZOLE, PREDNISONE, SIDIUM BICAR, AZELASTINE [Concomitant]
  3. FEROSUL, CALCITRIOL, ATORVASTATIN, [Concomitant]
  4. POT CHLORIDE TAB, ALFUZOSIN, FLUTICASONE, TOLTERODINE, LANTUS [Concomitant]
  5. LIPITOR, COLCHICINE [Concomitant]
  6. TRAVATAN, ZILEUTON ER, ALPHAGAN P, FREESTYLE KIT SENSOR [Concomitant]
  7. CEPHALEXIN, FINASTERIDE, VICTOZA, METOPROL, NOVOLOG [Concomitant]
  8. LORAZEPAM, FUROSEMIDE, BREO, CALCITRIOL [Concomitant]
  9. FLUTICASONE, ZILEUTON ER, FLOVENT HFA [Concomitant]

REACTIONS (1)
  - Rehabilitation therapy [None]
